FAERS Safety Report 7043947-2 (Version None)
Quarter: 2010Q4

REPORT INFORMATION
  Report Type: 
  Country: None (occurrence: None)
  Receive Date: 20101008
  Receipt Date: 20101008
  Transmission Date: 20110411
  Serious: Yes (Other)
  Sender: FDA-Public Use
  Company Number: None

PATIENT
  Age: 46 Year
  Sex: Female
  Weight: 71.6683 kg

DRUGS (1)
  1. MOXIFLOXACIN HCL [Suspect]
     Indication: CHRONIC SINUSITIS
     Dosage: 400 MG Q DAY PO
     Route: 048
     Dates: start: 20101006, end: 20101006

REACTIONS (4)
  - AGITATION [None]
  - CONFUSIONAL STATE [None]
  - FEAR [None]
  - SUICIDAL IDEATION [None]
